FAERS Safety Report 8252372-8 (Version None)
Quarter: 2012Q2

REPORT INFORMATION
  Report Type: 
  Country: None (occurrence: None)
  Receive Date: 20120402
  Receipt Date: 20111229
  Transmission Date: 20120825
  Serious: No
  Sender: FDA-Public Use
  Company Number: US-ABBOTT-11P-163-0804613-00

PATIENT
  Sex: Male
  Weight: 125 kg

DRUGS (6)
  1. ANDROGEL [Suspect]
     Dosage: DAILY DOSE: 5 GRAM(S)
     Route: 062
     Dates: start: 20100801
  2. ANDROGEL [Suspect]
     Indication: BLOOD TESTOSTERONE DECREASED
     Dosage: DAILY DOSE: 2.5 GRAM(S)
     Route: 062
     Dates: start: 20090101
  3. ASPIRIN [Concomitant]
     Indication: PRODUCT USED FOR UNKNOWN INDICATION
  4. ANDROGEL [Suspect]
     Dosage: DAILY DOSE: 3.75 GRAM(S)
     Route: 062
  5. METFORMIN HCL [Concomitant]
     Indication: DIABETES MELLITUS
     Dosage: DAILY DOSE:  UNKNOWN
     Route: 065
  6. ALL OTHER THERAPEUTIC PRODUCTS [Concomitant]
     Indication: BLOOD PRESSURE
     Dosage: DAILY DOSE:  UNKNOWN
     Route: 065

REACTIONS (4)
  - DRUG INEFFECTIVE [None]
  - BLOOD TESTOSTERONE DECREASED [None]
  - DRUG ADMINISTERED AT INAPPROPRIATE SITE [None]
  - HAEMOGLOBIN INCREASED [None]
